FAERS Safety Report 24189131 (Version 1)
Quarter: 2024Q3

REPORT INFORMATION
  Report Type: Spontaneous
  Country: CA (occurrence: CA)
  Receive Date: 20240808
  Receipt Date: 20240808
  Transmission Date: 20241016
  Serious: Yes (Other)
  Sender: AUROBINDO
  Company Number: CA-AUROBINDO-AUR-APL-2024-039448

PATIENT
  Sex: Female
  Weight: 198 kg

DRUGS (3)
  1. CEFIXIME [Suspect]
     Active Substance: CEFIXIME
     Indication: Kidney infection
     Dosage: 400 MILLIGRAM, 1 EVERY 5 WEEKS
     Route: 048
  2. CEFIXIME [Suspect]
     Active Substance: CEFIXIME
     Indication: Haematological infection
  3. STELARA [Suspect]
     Active Substance: USTEKINUMAB
     Indication: Crohn^s disease
     Dosage: 90 MILLIGRAM, 1 EVERY 4 WEEKS
     Route: 058

REACTIONS (4)
  - Crohn^s disease [Recovered/Resolved]
  - Cystitis [Recovered/Resolved]
  - Haematological infection [Recovered/Resolved]
  - Kidney infection [Recovered/Resolved]
